FAERS Safety Report 15451653 (Version 2)
Quarter: 2018Q4

REPORT INFORMATION
  Report Type: Spontaneous
  Country: SK (occurrence: SK)
  Receive Date: 20181001
  Receipt Date: 20181010
  Transmission Date: 20190204
  Serious: Yes (Hospitalization, Other)
  Sender: FDA-Public Use
  Company Number: SK-PFIZER INC-2018393830

PATIENT
  Age: 87 Year
  Sex: Female
  Weight: 62 kg

DRUGS (2)
  1. VEROSPIRON [Concomitant]
     Active Substance: SPIRONOLACTONE
     Dosage: UNK
  2. TRITACE [Suspect]
     Active Substance: RAMIPRIL
     Indication: HYPERTENSION
     Dosage: 0.63 MG, 2X/DAY (1-0-1, LONG-TERM)
     Route: 048

REACTIONS (2)
  - Hyperkalaemia [Recovered/Resolved]
  - Clostridium test positive [Unknown]

NARRATIVE: CASE EVENT DATE: 20180727
